FAERS Safety Report 8372925-6 (Version None)
Quarter: 2012Q2

REPORT INFORMATION
  Report Type: 
  Country: None (occurrence: None)
  Receive Date: 20120521
  Receipt Date: 20110520
  Transmission Date: 20120825
  Serious: No
  Sender: FDA-Public Use
  Company Number: US-ASTRAZENECA-2011SE41485

PATIENT
  Sex: Male

DRUGS (1)
  1. PRILOSEC OTC [Suspect]
     Route: 048
     Dates: start: 20110520, end: 20110520

REACTIONS (3)
  - LACERATION [None]
  - INJURY [None]
  - PRODUCT BLISTER PACKAGING ISSUE [None]
